FAERS Safety Report 14805331 (Version 5)
Quarter: 2018Q3

REPORT INFORMATION
  Report Type: Spontaneous
  Country: HU (occurrence: HU)
  Receive Date: 20180425
  Receipt Date: 20180815
  Transmission Date: 20181010
  Serious: Yes (Death, Life-Threatening, Hospitalization, Other)
  Sender: FDA-Public Use
  Company Number: HU-CELGENEUS-HUN-20180404328

PATIENT
  Age: 83 Year
  Sex: Male
  Weight: 81 kg

DRUGS (7)
  1. VENETOCLAX. [Concomitant]
     Active Substance: VENETOCLAX
     Indication: ACUTE MYELOID LEUKAEMIA
     Route: 048
  2. AZACITIDINE. [Suspect]
     Active Substance: AZACITIDINE
     Indication: ACUTE MYELOID LEUKAEMIA
     Dosage: 75 MILLIGRAM/SQ. METER
     Route: 058
     Dates: start: 20180403, end: 20180409
  3. PREDUCTAL MR [Concomitant]
     Active Substance: TRIMETAZIDINE DIHYDROCHLORIDE
     Indication: CARDIAC FAILURE
     Dosage: 70 MILLIGRAM
     Route: 048
     Dates: start: 20180306
  4. SODIUM CHLORIDE. [Concomitant]
     Active Substance: SODIUM CHLORIDE
     Indication: FLUID REPLACEMENT
  5. CONCOR [Concomitant]
     Active Substance: BISOPROLOL FUMARATE
     Indication: CARDIAC FAILURE
     Dosage: 5 MILLIGRAM
     Route: 048
     Dates: start: 20180306
  6. ALLOPURINOL. [Concomitant]
     Active Substance: ALLOPURINOL
     Indication: TUMOUR LYSIS SYNDROME
     Route: 048
     Dates: start: 20180403, end: 20180421
  7. SODIUM CHLORIDE. [Concomitant]
     Active Substance: SODIUM CHLORIDE
     Indication: TUMOUR LYSIS SYNDROME
     Route: 041
     Dates: start: 20180402, end: 20180405

REACTIONS (2)
  - Death [Fatal]
  - Clostridial sepsis [Recovered/Resolved]

NARRATIVE: CASE EVENT DATE: 20180410
